FAERS Safety Report 12142547 (Version 2)
Quarter: 2016Q1

REPORT INFORMATION
  Report Type: Spontaneous
  Country: US (occurrence: US)
  Receive Date: 20160303
  Receipt Date: 20160322
  Transmission Date: 20160526
  Serious: Yes (Hospitalization)
  Sender: FDA-Public Use
  Company Number: US-ENDO PHARMACEUTICALS INC.-2016-001558

PATIENT
  Sex: Female

DRUGS (1)
  1. LACTULOSE ORAL SOLUTION [Suspect]
     Active Substance: LACTULOSE
     Indication: AMMONIA INCREASED
     Route: 048
     Dates: start: 2015

REACTIONS (3)
  - Ammonia increased [Unknown]
  - Drug ineffective for unapproved indication [Unknown]
  - Off label use [Recovered/Resolved]
